FAERS Safety Report 7659444-7 (Version None)
Quarter: 2011Q3

REPORT INFORMATION
  Report Type: 
  Country: None (occurrence: None)
  Receive Date: 20110804
  Receipt Date: 20110804
  Transmission Date: 20111222
  Serious: Yes (Life-Threatening, Hospitalization, Other)
  Sender: FDA-Public Use
  Company Number: None

PATIENT
  Sex: Female
  Weight: 93.8946 kg

DRUGS (1)
  1. TOPAMAX [Suspect]
     Indication: MIGRAINE
     Dosage: 25 MG 1 BY MOUTH ORAL 5/9 - 5/12
     Route: 048

REACTIONS (24)
  - ASTHENIA [None]
  - MEMORY IMPAIRMENT [None]
  - HYPOAESTHESIA [None]
  - PARAESTHESIA [None]
  - BONE PAIN [None]
  - DISTURBANCE IN ATTENTION [None]
  - SOMNOLENCE [None]
  - DRUG HYPERSENSITIVITY [None]
  - ARTHRALGIA [None]
  - DYSPNOEA [None]
  - DRY MOUTH [None]
  - PAIN IN EXTREMITY [None]
  - MYALGIA [None]
  - HYPOACUSIS [None]
  - LEUKOPENIA [None]
  - MENSTRUAL DISORDER [None]
  - ATAXIA [None]
  - VERTIGO [None]
  - OTITIS MEDIA [None]
  - SPEECH DISORDER [None]
  - PSYCHOMOTOR RETARDATION [None]
  - CHEST PAIN [None]
  - CONFUSIONAL STATE [None]
  - HYPERTONIA [None]
